FAERS Safety Report 14026034 (Version 2)
Quarter: 2017Q4

REPORT INFORMATION
  Report Type: Spontaneous
  Country: FR (occurrence: FR)
  Receive Date: 20170929
  Receipt Date: 20171009
  Transmission Date: 20180321
  Serious: Yes (Other)
  Sender: FDA-Public Use
  Company Number: FR-ELI_LILLY_AND_COMPANY-FR201709006115

PATIENT
  Sex: Female

DRUGS (14)
  1. VELMETIA [Concomitant]
     Active Substance: METFORMIN\SITAGLIPTIN
     Indication: PRODUCT USED FOR UNKNOWN INDICATION
     Dosage: UNK, UNKNOWN
  2. XGEVA [Suspect]
     Active Substance: DENOSUMAB
     Dosage: UNK, UNKNOWN
     Route: 065
     Dates: start: 20161023
  3. NEXAVAR [Suspect]
     Active Substance: SORAFENIB
     Indication: LUNG ADENOCARCINOMA
     Dosage: 400 MG, CYCLICAL
     Route: 048
     Dates: start: 20170315, end: 201705
  4. XGEVA [Suspect]
     Active Substance: DENOSUMAB
     Dosage: UNK, CYCLICAL
     Route: 065
     Dates: end: 201703
  5. XGEVA [Suspect]
     Active Substance: DENOSUMAB
     Indication: LUNG ADENOCARCINOMA
     Dosage: UNK, UNKNOWN
     Route: 065
     Dates: start: 20160622
  6. PERINDOPRIL [Concomitant]
     Active Substance: PERINDOPRIL
     Indication: PRODUCT USED FOR UNKNOWN INDICATION
     Dosage: UNK, UNKNOWN
  7. BISOPROLOL [Concomitant]
     Active Substance: BISOPROLOL
     Indication: PRODUCT USED FOR UNKNOWN INDICATION
     Dosage: UNK, UNKNOWN
  8. GEMZAR [Suspect]
     Active Substance: GEMCITABINE HYDROCHLORIDE
     Indication: LUNG ADENOCARCINOMA
     Dosage: 2025 MG, CYCLICAL
     Route: 065
     Dates: start: 20170531
  9. REPAGLINIDE. [Concomitant]
     Active Substance: REPAGLINIDE
     Indication: PRODUCT USED FOR UNKNOWN INDICATION
     Dosage: UNK, UNKNOWN
  10. XGEVA [Suspect]
     Active Substance: DENOSUMAB
     Dosage: UNK, UNKNOWN
     Route: 065
     Dates: start: 20161126
  11. XGEVA [Suspect]
     Active Substance: DENOSUMAB
     Dosage: UNK, UNKNOWN
     Route: 065
     Dates: start: 20170125
  12. INNOHEP [Concomitant]
     Active Substance: TINZAPARIN SODIUM
     Indication: PRODUCT USED FOR UNKNOWN INDICATION
     Dosage: UNK, UNKNOWN
  13. LANTUS [Concomitant]
     Active Substance: INSULIN GLARGINE
     Indication: PRODUCT USED FOR UNKNOWN INDICATION
     Dosage: UNK, UNKNOWN
  14. PANTOPRAZOLE [Concomitant]
     Active Substance: PANTOPRAZOLE
     Indication: PRODUCT USED FOR UNKNOWN INDICATION
     Dosage: UNK, UNKNOWN

REACTIONS (3)
  - Osteonecrosis of jaw [Not Recovered/Not Resolved]
  - Pain in jaw [Unknown]
  - Gingival abscess [Not Recovered/Not Resolved]

NARRATIVE: CASE EVENT DATE: 2017
